FAERS Safety Report 9464051 (Version 1)
Quarter: 2013Q3

REPORT INFORMATION
  Report Type: Spontaneous
  Country: FR (occurrence: FR)
  Receive Date: 20130819
  Receipt Date: 20130819
  Transmission Date: 20140515
  Serious: Yes (Other)
  Sender: FDA-Public Use
  Company Number: FR-009507513-1308FRA003616

PATIENT
  Age: 43 Year
  Sex: Female

DRUGS (1)
  1. INTRONA [Suspect]
     Indication: MALIGNANT MELANOMA
     Dosage: 1 DF, TIW
     Route: 058
     Dates: start: 20120208

REACTIONS (1)
  - Guttate psoriasis [Not Recovered/Not Resolved]
